FAERS Safety Report 8869598 (Version 1)
Quarter: 2012Q4

REPORT INFORMATION
  Report Type: Report from Study
  Country: CA (occurrence: CA)
  Receive Date: 20121028
  Receipt Date: 20121028
  Transmission Date: 20130627
  Serious: Yes (Life-Threatening, Hospitalization)
  Sender: FDA-Public Use
  Company Number: CA-JNJFOC-20121009717

PATIENT
  Age: 45 None
  Sex: Female
  Weight: 110.6 kg

DRUGS (5)
  1. REMICADE [Suspect]
     Indication: RHEUMATOID ARTHRITIS
     Route: 042
     Dates: start: 20120223
  2. REMICADE [Suspect]
     Indication: RHEUMATOID ARTHRITIS
     Route: 042
     Dates: start: 20120717, end: 20120717
  3. METHOTREXATE [Suspect]
     Indication: PRODUCT USED FOR UNKNOWN INDICATION
     Route: 058
  4. PLAQUENIL [Concomitant]
     Route: 048
  5. UNKNOWN MEDICATION [Concomitant]
     Route: 065

REACTIONS (4)
  - Oxygen saturation abnormal [Unknown]
  - Dyspnoea [Unknown]
  - Cough [Unknown]
  - Anxiety [Unknown]
